FAERS Safety Report 6076061-3 (Version None)
Quarter: 2009Q1

REPORT INFORMATION
  Report Type: 
  Country: None (occurrence: None)
  Receive Date: 20090121
  Receipt Date: 20080521
  Transmission Date: 20090719
  Serious: Yes (Other)
  Sender: FDA-Public Use
  Company Number: HQWYE422103APR07

PATIENT
  Age: 48 Year
  Sex: Female

DRUGS (2)
  1. PREMPRO [Suspect]
  2. PREMARIN [Suspect]

REACTIONS (1)
  - BREAST CANCER [None]
